FAERS Safety Report 5311774-X (Version None)
Quarter: 2007Q2

REPORT INFORMATION
  Report Type: 
  Country: None (occurrence: None)
  Receive Date: 20070430
  Receipt Date: 20060302
  Transmission Date: 20071010
  Serious: No
  Sender: FDA-Public Use
  Company Number: 2006UW03647

PATIENT
  Age: 63 Year
  Sex: Female
  Weight: 88.5 kg

DRUGS (7)
  1. NEXIUM [Suspect]
     Indication: ERUCTATION
     Route: 048
  2. NEXIUM [Suspect]
     Indication: PAIN
     Route: 048
  3. CRESTOR [Concomitant]
     Route: 048
  4. PACERONE [Concomitant]
  5. TUMS ULTRA [Concomitant]
  6. ASPIRIN [Concomitant]
  7. TAPAZOLE [Concomitant]

REACTIONS (2)
  - ILL-DEFINED DISORDER [None]
  - NAUSEA [None]
